FAERS Safety Report 6672578-9 (Version None)
Quarter: 2010Q2

REPORT INFORMATION
  Report Type: 
  Country: None (occurrence: None)
  Receive Date: 20100408
  Receipt Date: 20100329
  Transmission Date: 20101027
  Serious: Yes (Hospitalization)
  Sender: FDA-Public Use
  Company Number: US-JNJFOC-20100400738

PATIENT
  Sex: Male
  Weight: 90.72 kg

DRUGS (4)
  1. INVEGA SUSTENNA [Suspect]
     Indication: SCHIZOPHRENIA
  2. INVEGA SUSTENNA [Suspect]
  3. INVEGA SUSTENNA [Suspect]
  4. DEPAKOTE [Concomitant]
     Indication: DRUG THERAPY

REACTIONS (1)
  - PSYCHOTIC DISORDER [None]
